FAERS Safety Report 4302667-5 (Version None)
Quarter: 2004Q1

REPORT INFORMATION
  Report Type: 
  Country: None (occurrence: None)
  Receive Date: 20040220
  Receipt Date: 20040217
  Transmission Date: 20041129
  Serious: Yes (Hospitalization)
  Sender: FDA-Public Use
  Company Number: TPG2004A00022

PATIENT
  Age: 77 Year
  Sex: Male

DRUGS (6)
  1. TRENANTONE (LEUPROLIDE ACETATE) [Suspect]
     Indication: PROSTATE CANCER
     Dosage: .254MG
     Route: 058
     Dates: start: 20011101
  2. NITRENIDPINE (NITRENDIPINE) [Concomitant]
  3. ALLOPURINOL [Concomitant]
  4. LORZAAR          (LOSARTAN POTASSIUM) [Concomitant]
  5. HYDROCHLOROTHIAZIDE [Concomitant]
  6. DOXACOR (DOXAZOSIN MESILATE) [Concomitant]

REACTIONS (10)
  - ACUTE FEBRILE NEUTROPHILIC DERMATOSIS [None]
  - AORTIC ATHEROSCLEROSIS [None]
  - HEPATIC STEATOSIS [None]
  - HYPERSENSITIVITY [None]
  - INFECTION [None]
  - NASOPHARYNGITIS [None]
  - PARANEOPLASTIC SYNDROME [None]
  - RENAL CYST [None]
  - SPLENOMEGALY [None]
  - URTICARIA [None]
